FAERS Safety Report 25419785 (Version 1)
Quarter: 2025Q2

REPORT INFORMATION
  Report Type: Spontaneous
  Country: US (occurrence: US)
  Receive Date: 20250610
  Receipt Date: 20250610
  Transmission Date: 20250717
  Serious: No
  Sender: SANOFI AVENTIS
  Company Number: US-SA-2025SA160935

PATIENT
  Age: 55 Year
  Sex: Female

DRUGS (1)
  1. DUPIXENT [Suspect]
     Active Substance: DUPILUMAB
     Indication: Nasal polyps
     Dosage: 300 MG, QOW
     Route: 058
     Dates: start: 20250210

REACTIONS (4)
  - Bronchitis [Recovered/Resolved]
  - Respiratory tract congestion [Recovered/Resolved]
  - Pulmonary mass [Unknown]
  - Influenza like illness [Unknown]

NARRATIVE: CASE EVENT DATE: 20250101
